FAERS Safety Report 5217510-X (Version None)
Quarter: 2007Q1

REPORT INFORMATION
  Report Type: 
  Country: None (occurrence: None)
  Receive Date: 20070124
  Receipt Date: 20070115
  Transmission Date: 20070707
  Serious: Yes (Hospitalization)
  Sender: FDA-Public Use
  Company Number: FR-SANOFI-SYNTHELABO-A02200602480

PATIENT
  Sex: Male
  Weight: 65 kg

DRUGS (3)
  1. PLAVIX [Suspect]
     Indication: SUICIDE ATTEMPT
     Route: 048
     Dates: start: 20060929, end: 20060929
  2. PLAVIX [Concomitant]
     Indication: CEREBROVASCULAR ACCIDENT
     Route: 048
     Dates: start: 20010101, end: 20060929
  3. LIBRAX [Suspect]
     Indication: SUICIDE ATTEMPT
     Route: 048
     Dates: start: 20060929, end: 20060929

REACTIONS (8)
  - CONSTIPATION [None]
  - DEPRESSION [None]
  - DRY MOUTH [None]
  - DYSURIA [None]
  - INTENTIONAL OVERDOSE [None]
  - MULTIPLE DRUG OVERDOSE [None]
  - SOMNOLENCE [None]
  - SUICIDE ATTEMPT [None]
